FAERS Safety Report 18497595 (Version 1)
Quarter: 2020Q4

REPORT INFORMATION
  Report Type: Spontaneous
  Country: RU (occurrence: RU)
  Receive Date: 20201112
  Receipt Date: 20201112
  Transmission Date: 20210114
  Serious: Yes (Other)
  Sender: FDA-Public Use
  Company Number: RU-ALLERGAN-2043744US

PATIENT
  Sex: Female

DRUGS (2)
  1. TRAVATAN [Suspect]
     Active Substance: TRAVOPROST
     Indication: PRODUCT USED FOR UNKNOWN INDICATION
     Dosage: UNK, QD
  2. COMBIGAN [Suspect]
     Active Substance: BRIMONIDINE TARTRATE\TIMOLOL MALEATE
     Indication: PRODUCT USED FOR UNKNOWN INDICATION
     Dosage: UNK, TID
     Route: 047

REACTIONS (3)
  - Off label use [Unknown]
  - Blindness unilateral [Not Recovered/Not Resolved]
  - Visual impairment [Not Recovered/Not Resolved]
